FAERS Safety Report 4288394-1 (Version None)
Quarter: 2004Q1

REPORT INFORMATION
  Report Type: 
  Country: None (occurrence: None)
  Receive Date: 20040205
  Receipt Date: 20040123
  Transmission Date: 20041129
  Serious: Yes (Death, Other)
  Sender: FDA-Public Use
  Company Number: 2003121461

PATIENT
  Age: 46 Year
  Sex: Male

DRUGS (5)
  1. GEODON [Suspect]
     Indication: PSYCHOTIC DISORDER
     Dosage: 80 MG (BID), ORAL
     Route: 048
     Dates: start: 20031110, end: 20031118
  2. FLUOXETINE HCL [Concomitant]
  3. SULFADIAZINE SILVER (SULFADIAZINE SILVER) [Concomitant]
  4. TIAGABINE HYDROCHLORIDE (TIAGABINE HYDROCHLORIDE ) [Concomitant]
  5. TAMSULOSIN (TAMSULOSIN) [Concomitant]

REACTIONS (1)
  - CARDIO-RESPIRATORY ARREST [None]
